FAERS Safety Report 4602878-5 (Version None)
Quarter: 2005Q1

REPORT INFORMATION
  Report Type: 
  Country: None (occurrence: None)
  Receive Date: 20050309
  Receipt Date: 20050128
  Transmission Date: 20050727
  Serious: Yes (Hospitalization)
  Sender: FDA-Public Use
  Company Number: GB-GLAXOSMITHKLINE-B0369072A

PATIENT
  Sex: Female

DRUGS (4)
  1. PAROXETINE HCL [Suspect]
     Indication: DEPRESSION
     Dosage: 20MG PER DAY
     Route: 048
  2. CO-AMILOFRUSE [Concomitant]
     Dosage: 1TAB PER DAY
     Route: 048
  3. NITRAZEPAM [Concomitant]
     Dosage: 5MG AT NIGHT
     Route: 048
  4. THYROXINE [Concomitant]
     Dosage: 100MG PER DAY
     Route: 048

REACTIONS (1)
  - RHABDOMYOLYSIS [None]
